FAERS Safety Report 7689602-7 (Version None)
Quarter: 2011Q3

REPORT INFORMATION
  Report Type: 
  Country: None (occurrence: None)
  Receive Date: 20110817
  Receipt Date: 20110808
  Transmission Date: 20111222
  Serious: Yes (Death, Hospitalization, Other)
  Sender: FDA-Public Use
  Company Number: FR-PURDUE-GBR-2011-0008624

PATIENT
  Sex: Male

DRUGS (3)
  1. OXYCODONE HCL [Suspect]
     Indication: PELVIC PAIN
     Dosage: 30 MG, BID
     Route: 048
     Dates: start: 20101217
  2. OXYCODONE HCL [Suspect]
     Dosage: 40 MG, UNK
     Dates: start: 20110801
  3. JAVLOR [Suspect]
     Indication: PRODUCT USED FOR UNKNOWN INDICATION
     Dosage: 280 MG/M2, UNK
     Route: 042
     Dates: start: 20101217

REACTIONS (5)
  - GENERAL PHYSICAL HEALTH DETERIORATION [None]
  - DECREASED APPETITE [None]
  - SUBILEUS [None]
  - ALTERED STATE OF CONSCIOUSNESS [None]
  - CONFUSIONAL STATE [None]
